FAERS Safety Report 12743970 (Version 1)
Quarter: 2016Q3

REPORT INFORMATION
  Report Type: Spontaneous
  Country: GB (occurrence: GB)
  Receive Date: 20160914
  Receipt Date: 20160914
  Transmission Date: 20161109
  Serious: Yes (Life-Threatening, Hospitalization)
  Sender: FDA-Public Use
  Company Number: GB-PFIZER INC-2016429035

PATIENT
  Age: 50 Year
  Sex: Female
  Weight: 54 kg

DRUGS (3)
  1. DIAZEPAM. [Concomitant]
     Active Substance: DIAZEPAM
  2. CICLOSPORIN [Concomitant]
     Active Substance: CYCLOSPORINE
  3. LYRICA [Suspect]
     Active Substance: PREGABALIN
     Indication: ANXIETY
     Dosage: 75 MG, 2X/DAY
     Route: 048
     Dates: start: 20160130, end: 20160710

REACTIONS (6)
  - Psoriasis [Not Recovered/Not Resolved]
  - Activities of daily living impaired [Unknown]
  - Rash generalised [Recovered/Resolved with Sequelae]
  - Malaise [Not Recovered/Not Resolved]
  - Impaired work ability [Unknown]
  - Skin burning sensation [Recovered/Resolved with Sequelae]

NARRATIVE: CASE EVENT DATE: 20160210
